FAERS Safety Report 13340903 (Version 1)
Quarter: 2017Q1

REPORT INFORMATION
  Report Type: Spontaneous
  Country: US (occurrence: US)
  Receive Date: 20170316
  Receipt Date: 20170316
  Transmission Date: 20170428
  Serious: Yes (Hospitalization)
  Sender: FDA-Public Use
  Company Number: US-BIOGEN-2017BI00369448

PATIENT
  Sex: Female

DRUGS (1)
  1. AVONEX [Suspect]
     Active Substance: INTERFERON BETA-1A
     Indication: MULTIPLE SCLEROSIS
     Route: 030
     Dates: start: 201110

REACTIONS (8)
  - Emotional distress [Unknown]
  - Fall [Recovered/Resolved]
  - Memory impairment [Unknown]
  - Somnolence [Unknown]
  - Hypoaesthesia [Unknown]
  - Skin lesion [Not Recovered/Not Resolved]
  - Limb injury [Unknown]
  - Neuropathy peripheral [Unknown]
